FAERS Safety Report 10993834 (Version 2)
Quarter: 2015Q2

REPORT INFORMATION
  Report Type: Spontaneous
  Country: AR (occurrence: None)
  Receive Date: 20150403
  Receipt Date: 20150520
  Transmission Date: 20150821
  Serious: Yes (Life-Threatening, Hospitalization, Other)
  Sender: FDA-Public Use
  Company Number: 2015-10971

PATIENT
  Age: 56 Year
  Sex: Male

DRUGS (2)
  1. PROPOFOL. [Concomitant]
     Active Substance: PROPOFOL
  2. EYLEA [Suspect]
     Active Substance: AFLIBERCEPT
     Indication: PRODUCT USED FOR UNKNOWN INDICATION
     Dosage: FIRST DOSE
     Dates: start: 201411, end: 201411

REACTIONS (3)
  - Inappropriate schedule of drug administration [None]
  - Cardiac arrest [None]
  - Coma [None]

NARRATIVE: CASE EVENT DATE: 201411
